FAERS Safety Report 23952126 (Version 1)
Quarter: 2024Q2

REPORT INFORMATION
  Report Type: Report from Study
  Country: BR (occurrence: BR)
  Receive Date: 20240607
  Receipt Date: 20240607
  Transmission Date: 20240716
  Serious: Yes (Other)
  Sender: FDA-Public Use
  Company Number: BR-JNJFOC-20240604300

PATIENT
  Age: 10 Year
  Sex: Male
  Weight: 32 kg

DRUGS (1)
  1. INFLIXIMAB [Suspect]
     Active Substance: INFLIXIMAB
     Indication: Crohn^s disease
     Dosage: 2 AMPOULES
     Route: 041
     Dates: start: 20220401, end: 20240405

REACTIONS (6)
  - Throat tightness [Recovered/Resolved]
  - Infusion related reaction [Recovered/Resolved]
  - Drug hypersensitivity [Recovered/Resolved]
  - Cough [Recovered/Resolved]
  - Dyspnoea [Recovered/Resolved]
  - Rash [Recovered/Resolved]

NARRATIVE: CASE EVENT DATE: 20240401
